FAERS Safety Report 9303498 (Version 1)
Quarter: 2013Q2

REPORT INFORMATION
  Report Type: Spontaneous
  Country: FR (occurrence: FR)
  Receive Date: 20130522
  Receipt Date: 20130522
  Transmission Date: 20140414
  Serious: Yes (Hospitalization)
  Sender: FDA-Public Use
  Company Number: FR-ABBOTT-13P-056-1092135-00

PATIENT
  Age: 84 Year
  Sex: Female

DRUGS (22)
  1. ULTANE [Suspect]
     Indication: ANAESTHESIA
     Route: 055
     Dates: start: 20130305, end: 20130305
  2. PARACETAMOL [Suspect]
     Indication: PAIN
     Route: 048
     Dates: start: 20130226, end: 20130307
  3. PARACETAMOL [Suspect]
     Route: 042
     Dates: start: 20130224, end: 20130225
  4. CELEBREX [Suspect]
     Indication: PAIN
     Route: 048
     Dates: start: 20130227, end: 20130307
  5. OMEPRAZOLE [Suspect]
     Indication: PRODUCT USED FOR UNKNOWN INDICATION
     Route: 048
     Dates: start: 20130227, end: 20130307
  6. RANIPLEX [Suspect]
     Indication: PRODUCT USED FOR UNKNOWN INDICATION
     Route: 048
     Dates: start: 20130305, end: 20130305
  7. AUGMENTIN [Suspect]
     Indication: ANAESTHETIC PREMEDICATION
     Dates: start: 201303, end: 20130307
  8. SUFENTANIL [Suspect]
     Indication: ANAESTHESIA
     Dates: start: 20130305, end: 20130305
  9. DIPRIVAN [Suspect]
     Indication: ANAESTHESIA
     Dates: start: 20130305, end: 20130305
  10. KETAMINE [Suspect]
     Indication: ANAESTHESIA
     Dates: start: 20130305, end: 20130305
  11. CELESTENE [Suspect]
     Indication: PRODUCT USED FOR UNKNOWN INDICATION
     Dates: start: 20130305, end: 20130305
  12. EPHEDRINE [Suspect]
     Indication: ANAESTHESIA
     Dates: start: 20130305, end: 20130305
  13. NEOSYNEPHRINE [Suspect]
     Indication: ANAESTHESIA
     Dates: start: 20130305, end: 20130305
  14. DROLEPTAN [Suspect]
     Indication: ANAESTHESIA
     Dates: start: 20130305, end: 20130305
  15. VANCOMYCINE [Suspect]
     Indication: ANAESTHESIA
     Dates: start: 20130305, end: 20130305
  16. MORPHINE [Suspect]
     Indication: PRODUCT USED FOR UNKNOWN INDICATION
     Dates: start: 20130305, end: 20130305
  17. CATAPRESSAN [Suspect]
     Indication: PRODUCT USED FOR UNKNOWN INDICATION
     Dates: start: 20130305, end: 20130305
  18. ACUPAN [Concomitant]
     Indication: ANAESTHESIA
     Dates: start: 20130224
  19. BRICANYL [Concomitant]
     Indication: ANAESTHESIA
     Dosage: AEROSOL
  20. ATROVENT [Concomitant]
     Indication: ANAESTHESIA
     Dosage: AEROSOL
  21. APROVEL [Concomitant]
     Indication: PRODUCT USED FOR UNKNOWN INDICATION
  22. PYOSTACINE [Concomitant]
     Indication: ANAESTHETIC PREMEDICATION

REACTIONS (2)
  - Hepatocellular injury [Recovering/Resolving]
  - Cholestasis [Recovering/Resolving]
